FAERS Safety Report 10240254 (Version 1)
Quarter: 2014Q2

REPORT INFORMATION
  Report Type: Spontaneous
  Country: NL (occurrence: NL)
  Receive Date: 20140617
  Receipt Date: 20140617
  Transmission Date: 20141212
  Serious: Yes (Hospitalization, Other)
  Sender: FDA-Public Use
  Company Number: PHHY2014NL071023

PATIENT
  Age: 44 Year
  Sex: Male

DRUGS (8)
  1. APREPITANT [Suspect]
     Indication: PROPHYLAXIS OF NAUSEA AND VOMITING
     Dosage: 125 MG, UNK
  2. APREPITANT [Interacting]
     Dosage: 80 MG, UNK
  3. APREPITANT [Interacting]
     Dosage: 80 MG, UNK
  4. QUETIAPINE [Interacting]
     Indication: ANXIETY
     Dosage: 50 MG, QD
  5. CITALOPRAM [Concomitant]
     Indication: DEPRESSION
  6. CISPLATIN [Concomitant]
     Indication: LARYNGEAL CANCER STAGE 0
     Dosage: 100 MG/M2 EVERY 3 WEEKS
  7. DEXAMETHASONE [Concomitant]
     Indication: PROPHYLAXIS OF NAUSEA AND VOMITING
  8. ONDANSETRON [Concomitant]
     Indication: PROPHYLAXIS OF NAUSEA AND VOMITING

REACTIONS (4)
  - Dehydration [Recovering/Resolving]
  - Somnolence [Recovering/Resolving]
  - Renal impairment [Recovering/Resolving]
  - Drug interaction [Unknown]
